FAERS Safety Report 4631059-4 (Version None)
Quarter: 2005Q2

REPORT INFORMATION
  Report Type: 
  Country: None (occurrence: None)
  Receive Date: 20050408
  Receipt Date: 20050329
  Transmission Date: 20051028
  Serious: Yes (Hospitalization, Other)
  Sender: FDA-Public Use
  Company Number: US-ABBOTT-05P-163-0296249-00

PATIENT
  Age: 5 Month
  Sex: Male
  Weight: 9.3 kg

DRUGS (7)
  1. SEVOFLURANE [Suspect]
     Indication: INDUCTION OF ANAESTHESIA
     Dosage: NOT REPORTED, NOT REPORTEDN
  2. SEVOFLURANE [Suspect]
     Indication: MAINTENANCE OF ANAESTHESIA
     Dosage: 2-4 %, NOT REPORTED, NOT REPORTED
  3. OXYGEN [Concomitant]
     Indication: INDUCTION OF ANAESTHESIA
     Dosage: NOT REPORTED, NOT REPORTED
  4. OXYGEN [Concomitant]
     Indication: MAINTENANCE OF ANAESTHESIA
     Dosage: NOT REPORTED, NOT REPORTED, BLOW-BY
  5. NITROUS OXIDE [Concomitant]
     Indication: INDUCTION OF ANAESTHESIA
     Dosage: NOT REPORTED
  6. NITROUS OXIDE [Concomitant]
     Indication: MAINTENANCE OF ANAESTHESIA
     Dosage: NOT REPORTED, NOT REPORTED
  7. MARCAIN-ADRENALIN [Concomitant]
     Indication: EPIDURAL ANAESTHESIA
     Dosage: 8ML OF 1.25% WITH 1: 400,000, ONCE
     Route: 053

REACTIONS (7)
  - ANAESTHETIC COMPLICATION [None]
  - ATRIAL TACHYCARDIA [None]
  - BLOOD PRESSURE DECREASED [None]
  - CRYING [None]
  - IRRITABILITY [None]
  - SUPRAVENTRICULAR TACHYCARDIA [None]
  - TACHYARRHYTHMIA [None]
